FAERS Safety Report 6894981-4 (Version None)
Quarter: 2010Q3

REPORT INFORMATION
  Report Type: 
  Country: None (occurrence: None)
  Receive Date: 20100708
  Receipt Date: 20100426
  Transmission Date: 20110219
  Serious: Yes (Hospitalization)
  Sender: FDA-Public Use
  Company Number: 2010053223

PATIENT
  Age: 67 Year
  Sex: Female
  Weight: 68 kg

DRUGS (9)
  1. CHANTIX [Suspect]
     Indication: SMOKING CESSATION THERAPY
     Dosage: ORAL
     Route: 048
     Dates: start: 20100226, end: 20100408
  2. LOVASTATIN [Concomitant]
  3. ATENOLOL [Concomitant]
  4. FEMARA [Concomitant]
  5. TICLOPIDINE HYDROCHLORIDE [Concomitant]
  6. PAROXETINE HCL [Concomitant]
  7. PRAMIPEXOLE DIHYDROCHLORIDE [Concomitant]
  8. FAMOTIDINE [Concomitant]
  9. ALENDRONATE SODIUM [Concomitant]

REACTIONS (2)
  - DRUG INEFFECTIVE [None]
  - HYPERSENSITIVITY [None]
